FAERS Safety Report 13596532 (Version 1)
Quarter: 2017Q2

REPORT INFORMATION
  Report Type: Spontaneous
  Country: US (occurrence: US)
  Receive Date: 20170523
  Receipt Date: 20170523
  Transmission Date: 20170830
  Serious: Yes (Other)
  Sender: FDA-Public Use
  Company Number: None

PATIENT
  Age: 28 Year
  Sex: Male
  Weight: 74.25 kg

DRUGS (1)
  1. DIAMOND CBD [Suspect]
     Active Substance: CANNABIDIOL\CANNABIS SATIVA SEED OIL
     Indication: MALAISE
     Dosage: ?          QUANTITY:12 DROP(S);?
     Route: 048
     Dates: start: 20170501

REACTIONS (9)
  - Mental impairment [None]
  - Suicidal ideation [None]
  - Nervousness [None]
  - Product advertising issue [None]
  - Hyporeflexia [None]
  - Poisoning [None]
  - Vision blurred [None]
  - Depression [None]
  - Abulia [None]

NARRATIVE: CASE EVENT DATE: 20170501
